FAERS Safety Report 8787411 (Version 1)
Quarter: 2012Q4

REPORT INFORMATION
  Report Type: 
  Country: US (occurrence: US)
  Receive Date: 20120914
  Receipt Date: 20120914
  Transmission Date: 20130627
  Serious: Yes (Hospitalization)
  Sender: FDA-Public Use
  Company Number: US-VERTEX PHARMACEUTICAL INC.-AE-2012-010696

PATIENT
  Age: 58 None
  Sex: Female
  Weight: 49.91 kg

DRUGS (6)
  1. INCIVEK [Suspect]
     Indication: HEPATITIS C
     Route: 048
     Dates: start: 20120608, end: 20120712
  2. RIBAVIRIN [Concomitant]
     Indication: HEPATITIS C
     Route: 048
     Dates: start: 20120608, end: 201207
  3. RIBAVIRIN [Concomitant]
     Route: 048
     Dates: start: 201207, end: 20120712
  4. PEGINTERFERON ALPHA [Concomitant]
     Indication: HEPATITIS C
     Route: 058
     Dates: start: 20120608, end: 20120712
  5. AMLODIPINE [Concomitant]
     Indication: HYPERTENSION
     Route: 048
  6. ATENOLOL [Concomitant]
     Indication: HYPERTENSION
     Route: 048

REACTIONS (2)
  - Red blood cell count decreased [Unknown]
  - Asthenia [Not Recovered/Not Resolved]
